FAERS Safety Report 15079736 (Version 3)
Quarter: 2019Q1

REPORT INFORMATION
  Report Type: Spontaneous
  Country: JP (occurrence: JP)
  Receive Date: 20180627
  Receipt Date: 20190219
  Transmission Date: 20190417
  Serious: Yes (Hospitalization)
  Sender: FDA-Public Use
  Company Number: JP-CELGENEUS-JPN-20180606880

PATIENT
  Age: 68 Year
  Sex: Male
  Weight: 54.4 kg

DRUGS (22)
  1. REVLIMID [Suspect]
     Active Substance: LENALIDOMIDE
     Dosage: 15 MG
     Route: 048
     Dates: start: 20170614, end: 2018
  2. METHYCOBAL [Concomitant]
     Active Substance: METHYLCOBALAMIN
     Indication: PERIPHERAL SENSORY NEUROPATHY
  3. NINLARO [Suspect]
     Active Substance: IXAZOMIB CITRATE
     Dosage: 3 MILLIGRAM
     Route: 065
     Dates: start: 20180502, end: 20180516
  4. ANTEBATE [Concomitant]
     Active Substance: BETAMETHASONE DIPROPIONATE
     Indication: SCLERODERMA
     Dosage: PROPER
     Route: 062
     Dates: start: 20170113
  5. PROTOPIC [Concomitant]
     Active Substance: TACROLIMUS
     Indication: SCLERODERMA
     Dosage: PROPER
     Route: 062
     Dates: start: 20171215
  6. NINLARO [Suspect]
     Active Substance: IXAZOMIB CITRATE
     Indication: PLASMA CELL MYELOMA
     Dosage: 4 MILLIGRAM
     Route: 065
     Dates: start: 20161130, end: 20161207
  7. DAIPHEN [Concomitant]
     Active Substance: SULFAMETHOXAZOLE\TRIMETHOPRIM
     Indication: INFECTION PROPHYLAXIS
     Dosage: 1 TABLET
     Route: 048
     Dates: start: 20081205
  8. METHYCOBAL [Concomitant]
     Active Substance: METHYLCOBALAMIN
     Indication: CARPAL TUNNEL SYNDROME
     Dosage: 1500 MICROGRAM
     Route: 048
     Dates: start: 20070901
  9. REVLIMID [Suspect]
     Active Substance: LENALIDOMIDE
     Indication: PLASMA CELL MYELOMA
     Dosage: 25 MG
     Route: 048
     Dates: start: 20161130
  10. LENADEX [Suspect]
     Active Substance: DEXAMETHASONE ACETATE
     Indication: PLASMA CELL MYELOMA
     Dosage: 40 MG
     Route: 048
     Dates: start: 20161130, end: 2018
  11. ACICLOVIR [Concomitant]
     Active Substance: ACYCLOVIR
     Indication: ANTIVIRAL PROPHYLAXIS
     Dosage: 200 MG
     Route: 048
     Dates: start: 20141015, end: 20180612
  12. BAYASPIRIN [Concomitant]
     Active Substance: ASPIRIN
     Indication: THROMBOSIS PROPHYLAXIS
     Dosage: 100 MG
     Route: 048
     Dates: start: 20161130, end: 20180528
  13. NINLARO [Suspect]
     Active Substance: IXAZOMIB CITRATE
     Dosage: 3 MILLIGRAM
     Route: 065
     Dates: start: 20161214, end: 20180403
  14. FUROSEMIDE. [Concomitant]
     Active Substance: FUROSEMIDE
     Indication: PLEURAL EFFUSION
  15. LOPERAMIDE HYDROCHLORIDE. [Concomitant]
     Active Substance: LOPERAMIDE HYDROCHLORIDE
     Indication: DIARRHOEA
     Dosage: 1 MILLIGRAM
     Route: 048
     Dates: start: 20180206
  16. REVLIMID [Suspect]
     Active Substance: LENALIDOMIDE
     Dosage: 10 MG
     Route: 048
     Dates: start: 20180502, end: 20180522
  17. FUROSEMIDE. [Concomitant]
     Active Substance: FUROSEMIDE
     Indication: OEDEMA PERIPHERAL
     Route: 048
     Dates: start: 20161221, end: 20180528
  18. ANTEBATE [Concomitant]
     Active Substance: BETAMETHASONE DIPROPIONATE
     Indication: KOILONYCHIA
  19. LENADEX [Suspect]
     Active Substance: DEXAMETHASONE ACETATE
     Dosage: 40 MG
     Route: 048
     Dates: start: 20180502, end: 20180523
  20. ALESION [Concomitant]
     Active Substance: EPINASTINE HYDROCHLORIDE
     Indication: PROPHYLAXIS
     Dosage: 20 MILLIGRAM
     Route: 048
     Dates: start: 20090623
  21. PROTOPIC [Concomitant]
     Active Substance: TACROLIMUS
     Indication: KOILONYCHIA
  22. CARBOCISTEINE [Concomitant]
     Active Substance: CARBOCYSTEINE
     Indication: PROPHYLAXIS
     Dosage: 500 MG
     Route: 048
     Dates: start: 20141015, end: 20180612

REACTIONS (2)
  - Pleural effusion [Not Recovered/Not Resolved]
  - Inguinal hernia [Recovered/Resolved]

NARRATIVE: CASE EVENT DATE: 20180306
